FAERS Safety Report 8838267 (Version 1)
Quarter: 2012Q4

REPORT INFORMATION
  Report Type: 
  Country: US (occurrence: US)
  Receive Date: 20121012
  Receipt Date: 20121012
  Transmission Date: 20130627
  Serious: Yes (Other)
  Sender: FDA-Public Use
  Company Number: US-ROCHE-1130894

PATIENT
  Sex: Male

DRUGS (2)
  1. RITUXAN [Suspect]
     Indication: MANTLE CELL LYMPHOMA
     Route: 065
     Dates: start: 19980123, end: 19980213
  2. INTERFERON ALFA [Concomitant]
     Route: 065

REACTIONS (5)
  - Increased tendency to bruise [Unknown]
  - Leukopenia [Unknown]
  - Nausea [Unknown]
  - Bronchospasm [Unknown]
  - Hypotension [Unknown]
